FAERS Safety Report 8418636-X (Version None)
Quarter: 2012Q2

REPORT INFORMATION
  Report Type: 
  Country: None (occurrence: None)
  Receive Date: 20120607
  Receipt Date: 20120525
  Transmission Date: 20120825
  Serious: Yes (Other)
  Sender: FDA-Public Use
  Company Number: JP-UCBSA-057404

PATIENT
  Age: 41 Year
  Sex: Female

DRUGS (3)
  1. KEPPRA [Suspect]
     Route: 048
     Dates: start: 20120208, end: 20120427
  2. TEGRETOL [Concomitant]
     Route: 048
  3. KEPPRA [Suspect]
     Route: 048
     Dates: start: 20120504, end: 20120507

REACTIONS (1)
  - NEUTROPHIL COUNT DECREASED [None]
